FAERS Safety Report 11813678 (Version 1)
Quarter: 2015Q4

REPORT INFORMATION
  Report Type: Spontaneous
  Country: US (occurrence: US)
  Receive Date: 20151209
  Receipt Date: 20151209
  Transmission Date: 20160305
  Serious: No
  Sender: FDA-Public Use
  Company Number: US-MISSION PHARMACAL COMPANY-1045239

PATIENT
  Age: 57 Year
  Sex: Male

DRUGS (2)
  1. OMEPRAZOLE. [Concomitant]
     Active Substance: OMEPRAZOLE
     Route: 065
  2. THIOLA [Suspect]
     Active Substance: TIOPRONIN
     Indication: CYSTINURIA
     Route: 048
     Dates: start: 20150126

REACTIONS (4)
  - Arthralgia [Unknown]
  - Gastrooesophageal reflux disease [Not Recovered/Not Resolved]
  - Drug dose omission [Unknown]
  - Xerosis [Unknown]
